FAERS Safety Report 9609261 (Version 2)
Quarter: 2013Q4

REPORT INFORMATION
  Report Type: Spontaneous
  Country: US (occurrence: US)
  Receive Date: 20131009
  Receipt Date: 20131009
  Transmission Date: 20140711
  Serious: No
  Sender: FDA-Public Use
  Company Number: US-PURDUE-USA-2012-0094467

PATIENT
  Age: 80 Year
  Sex: Male
  Weight: 49.89 kg

DRUGS (12)
  1. BUTRANS [Suspect]
     Indication: SPINAL PAIN
     Dosage: 10 MCG, UNK
     Route: 062
     Dates: start: 20120720
  2. BUTRANS [Suspect]
     Dosage: 20 MCG, UNK
     Route: 062
     Dates: end: 20121027
  3. PROSCAR [Concomitant]
     Indication: PRODUCT USED FOR UNKNOWN INDICATION
     Dosage: 5 MG, DAILY
  4. FLOMAX                             /01280302/ [Concomitant]
     Indication: PRODUCT USED FOR UNKNOWN INDICATION
     Dosage: 0.4 MG, DAILY
  5. NORCO [Concomitant]
     Indication: PRODUCT USED FOR UNKNOWN INDICATION
     Dosage: 10 MG, PRN
  6. METOPROLOL                         /00376902/ [Concomitant]
     Indication: HYPERTENSION
     Dosage: 50 MG, PRN
  7. SPIRIVA [Concomitant]
     Indication: PRODUCT USED FOR UNKNOWN INDICATION
     Dosage: 18 MCG, UNK
  8. ADVAIR [Concomitant]
     Indication: PRODUCT USED FOR UNKNOWN INDICATION
     Dosage: 1 PUFF, BID
     Route: 055
  9. DIGOXIN                            /00545901/ [Concomitant]
     Indication: PRODUCT USED FOR UNKNOWN INDICATION
     Dosage: 0.125 MG, DAILY
  10. LUTEIN                             /01638501/ [Concomitant]
     Indication: PRODUCT USED FOR UNKNOWN INDICATION
     Dosage: 20 MG, DAILY
  11. PRESERVISION EYE VITAMIN AND MINERAL SUPPL. [Concomitant]
     Indication: PRODUCT USED FOR UNKNOWN INDICATION
     Dosage: 2 DF, DAILY
  12. XANAX [Concomitant]
     Indication: PRODUCT USED FOR UNKNOWN INDICATION
     Dosage: 0.25 MG, PRN

REACTIONS (7)
  - Application site bruise [Recovered/Resolved]
  - Application site erosion [Recovered/Resolved]
  - Application site irritation [Recovered/Resolved]
  - Product adhesion issue [Recovered/Resolved]
  - Drug ineffective [Recovered/Resolved]
  - Application site rash [Recovered/Resolved]
  - Application site exfoliation [Recovered/Resolved]
